FAERS Safety Report 8389571-0 (Version None)
Quarter: 2012Q2

REPORT INFORMATION
  Report Type: 
  Country: None (occurrence: None)
  Receive Date: 20120528
  Receipt Date: 20120525
  Transmission Date: 20120825
  Serious: Yes (Death)
  Sender: FDA-Public Use
  Company Number: PHHY2012JP036612

PATIENT
  Age: 81 Year
  Sex: Male

DRUGS (17)
  1. PREDNISOLONE [Concomitant]
     Dosage: 17.5 MG, UNK
     Route: 048
  2. COTRIM [Concomitant]
     Dosage: 1 G, UNK
     Route: 048
  3. URSO 250 [Concomitant]
     Dosage: 600 MG, UNK
     Route: 048
  4. RABEPRAZOLE SODIUM [Concomitant]
     Dosage: 10 MG, UNK
     Route: 048
  5. FLORINEF [Concomitant]
     Dosage: 0.01 MG, UNK
     Route: 048
  6. EXJADE [Concomitant]
     Dosage: 1000 MG, UNK
     Route: 048
  7. DESYREL [Concomitant]
     Dosage: 25 MG, UNK
     Route: 048
  8. PROMACTA [Concomitant]
     Dosage: 150 MG, UNK
     Route: 048
  9. SANDIMMUNE [Concomitant]
     Indication: BEHCET'S SYNDROME
     Dosage: 90 MG, UNK
     Route: 041
  10. PURSENNID [Concomitant]
     Dosage: 24 MG, UNK
     Route: 048
  11. ALFACALCIDOL [Concomitant]
     Dosage: 0.5 UG, UNK
     Route: 048
  12. NEORAL [Suspect]
     Indication: BEHCET'S SYNDROME
     Dosage: 160 MG, DAILY
     Route: 048
  13. NEORAL [Suspect]
     Dosage: 160 MG, DAILY
     Route: 048
  14. AMLODIPINE [Concomitant]
     Dosage: 5 MG, UNK
     Route: 048
  15. MAGNESIUM OXIDE [Concomitant]
     Dosage: 1500 MG, UNK
     Route: 048
  16. PENTASA [Concomitant]
     Dosage: 2000 MG, UNK
     Route: 048
  17. DICLOFENAC SODIUM [Concomitant]
     Dosage: 15 MG, UNK
     Route: 062

REACTIONS (2)
  - DEATH [None]
  - DYSPHAGIA [None]
